FAERS Safety Report 5393213-6 (Version None)
Quarter: 2007Q3

REPORT INFORMATION
  Report Type: 
  Country: None (occurrence: None)
  Receive Date: 20070718
  Receipt Date: 20060524
  Transmission Date: 20080115
  Serious: Yes (Other)
  Sender: FDA-Public Use
  Company Number: 2006069339

PATIENT

DRUGS (1)
  1. CELEBREX [Suspect]
     Indication: ILL-DEFINED DISORDER
     Dates: start: 19990101, end: 20040601

REACTIONS (1)
  - CEREBROVASCULAR ACCIDENT [None]
